FAERS Safety Report 11319406 (Version 2)
Quarter: 2015Q3

REPORT INFORMATION
  Report Type: Report from Study
  Country: BR (occurrence: BR)
  Receive Date: 20150729
  Receipt Date: 20150814
  Transmission Date: 20151125
  Serious: Yes (Hospitalization)
  Sender: FDA-Public Use
  Company Number: PHHY2015BR090389

PATIENT
  Age: 88 Year
  Sex: Female
  Weight: 69 kg

DRUGS (12)
  1. EXELON PATCH [Suspect]
     Active Substance: RIVASTIGMINE
     Indication: DEMENTIA
     Dosage: PATCH 10 (CM2)
     Route: 062
  2. FRONTAL [Concomitant]
     Active Substance: ALPRAZOLAM
     Indication: DEPRESSION
     Dosage: 0.5 MG, QD
     Route: 048
  3. EXELON PATCH [Suspect]
     Active Substance: RIVASTIGMINE
     Indication: PARKINSON^S DISEASE
  4. PROLOPA [Concomitant]
     Active Substance: BENSERAZIDE\LEVODOPA
     Indication: ANXIETY
     Dosage: UNK, HALF TABLET (FOUR TIMES A DAY) STARTED MANY YEARS AGO
     Route: 048
  5. LABIRIN [Concomitant]
     Active Substance: BETAHISTINE
     Indication: LABYRINTHITIS
     Dosage: HALF TABLET (16 MG) TWICE PER DAY
     Route: 048
  6. RIVOTRIL [Concomitant]
     Active Substance: CLONAZEPAM
     Indication: ANXIETY
     Dosage: 1 TABLET PER DAY, IN CASE OF EPISODE
     Route: 048
     Dates: start: 20150720
  7. CORUS FA [Concomitant]
     Indication: HYPERTENSION
     Dosage: 50 MG, QD
     Route: 048
  8. DONILA [Concomitant]
     Active Substance: DONEPEZIL HYDROCHLORIDE
     Indication: PRODUCT USED FOR UNKNOWN INDICATION
     Dosage: 10 MG, QD
     Route: 048
  9. HYABAK [Concomitant]
     Indication: CATARACT
     Dosage: 1 GTT, BID
     Route: 047
  10. SELEGILINE [Concomitant]
     Active Substance: SELEGILINE
     Indication: PRODUCT USED FOR UNKNOWN INDICATION
     Dosage: 2 MG, BID
     Route: 048
  11. DIGESAN [Concomitant]
     Active Substance: BROMOPRIDE
     Indication: DYSPNOEA
     Dosage: 10 MG, BID
     Route: 048
     Dates: start: 20150720
  12. GABAPENTIN. [Concomitant]
     Active Substance: GABAPENTIN
     Indication: PAIN
     Dosage: 300 MG, BID
     Route: 048

REACTIONS (3)
  - Erythema [Not Recovered/Not Resolved]
  - Pneumonia [Recovering/Resolving]
  - Pruritus [Not Recovered/Not Resolved]

NARRATIVE: CASE EVENT DATE: 20150327
